FAERS Safety Report 23462739 (Version 1)
Quarter: 2024Q1

REPORT INFORMATION
  Report Type: Spontaneous
  Country: US (occurrence: US)
  Receive Date: 20240131
  Receipt Date: 20240131
  Transmission Date: 20240409
  Serious: Yes (Other)
  Sender: FDA-Public Use
  Company Number: US-PFIZER INC-202400026196

PATIENT
  Age: 77 Year
  Sex: Male

DRUGS (11)
  1. VORICONAZOLE [Suspect]
     Active Substance: VORICONAZOLE
     Indication: Keratitis
     Dosage: 200 MG, 2X/DAY
     Route: 048
  2. NATAMYCIN [Suspect]
     Active Substance: NATAMYCIN
     Indication: Keratitis
     Dosage: UNK
     Route: 061
  3. MOXIFLOXACIN [Suspect]
     Active Substance: MOXIFLOXACIN
     Indication: Antifungal treatment
     Dosage: 0.5 %
     Route: 061
  4. MOXIFLOXACIN [Suspect]
     Active Substance: MOXIFLOXACIN
     Dosage: UNK
  5. DOXYCYCLINE [Concomitant]
     Active Substance: DOXYCYCLINE
     Dosage: 100 MG, 2X/DAY
     Route: 048
  6. CENEGERMIN [Concomitant]
     Active Substance: CENEGERMIN
     Dosage: UNK
     Route: 061
  7. TIMOLOL [Concomitant]
     Active Substance: TIMOLOL
     Dosage: UNK
     Route: 061
  8. BRIMONIDINE [Concomitant]
     Active Substance: BRIMONIDINE TARTRATE
     Dosage: UNK
     Route: 061
  9. LATANOPROST [Concomitant]
     Active Substance: LATANOPROST
     Dosage: UNK
     Route: 061
  10. LOTEPREDNOL [Concomitant]
     Active Substance: LOTEPREDNOL
     Dosage: 0.5 %
     Route: 061
  11. PREDNISOLONE ACETATE [Concomitant]
     Active Substance: PREDNISOLONE ACETATE
     Dosage: 1 %
     Route: 061

REACTIONS (2)
  - Corneal perforation [Recovered/Resolved]
  - Drug ineffective [Recovered/Resolved]
